FAERS Safety Report 5518168-2 (Version None)
Quarter: 2007Q4

REPORT INFORMATION
  Report Type: 
  Country: None (occurrence: None)
  Receive Date: 20071113
  Receipt Date: 20071113
  Transmission Date: 20080405
  Serious: Yes (Life-Threatening)
  Sender: FDA-Public Use
  Company Number: None

PATIENT
  Age: 19 Year
  Sex: Male
  Weight: 65.7716 kg

DRUGS (1)
  1. KEPPRA [Suspect]
     Indication: CONVULSION
     Dates: start: 20071025, end: 20071104

REACTIONS (4)
  - PYREXIA [None]
  - RASH [None]
  - SEPTIC SHOCK [None]
  - TYPE IV HYPERSENSITIVITY REACTION [None]
